FAERS Safety Report 6558374-1 (Version None)
Quarter: 2010Q1

REPORT INFORMATION
  Report Type: 
  Country: None (occurrence: None)
  Receive Date: 20100129
  Receipt Date: 20100126
  Transmission Date: 20100710
  Serious: Yes (Other)
  Sender: FDA-Public Use
  Company Number: DE-MERCK-1001DEU00101

PATIENT
  Age: 77 Year
  Sex: Male

DRUGS (2)
  1. PROSCAR [Suspect]
     Indication: BENIGN PROSTATIC HYPERPLASIA
     Route: 048
     Dates: start: 20060101, end: 20080101
  2. PROSCAR [Suspect]
     Route: 048
     Dates: start: 20091101

REACTIONS (6)
  - ECHINOCOCCIASIS [None]
  - HEPATIC NEOPLASM [None]
  - NIPPLE PAIN [None]
  - PRURITUS [None]
  - RASH [None]
  - RASH MACULO-PAPULAR [None]
